FAERS Safety Report 20075933 (Version 1)
Quarter: 2021Q4

REPORT INFORMATION
  Report Type: Spontaneous
  Country: US (occurrence: None)
  Receive Date: 20211116
  Receipt Date: 20211116
  Transmission Date: 20220304
  Serious: Yes (Other)
  Sender: FDA-Public Use
  Company Number: None

PATIENT
  Age: 48 Year
  Sex: Female
  Weight: 137.7 kg

DRUGS (12)
  1. ROPINIROLE [Suspect]
     Active Substance: ROPINIROLE
     Indication: Restless legs syndrome
     Dosage: OTHER QUANTITY : 1 TABLET(S);?FREQUENCY : AT BEDTIME;?
     Route: 048
     Dates: start: 20200521, end: 20210528
  2. XARELTO [Concomitant]
     Active Substance: RIVAROXABAN
  3. PLAQUENIL [Concomitant]
     Active Substance: HYDROXYCHLOROQUINE SULFATE
  4. CYMBALTA [Concomitant]
     Active Substance: DULOXETINE HYDROCHLORIDE
  5. METHADONE [Concomitant]
     Active Substance: METHADONE HYDROCHLORIDE
  6. TRAMADOL [Concomitant]
     Active Substance: TRAMADOL
  7. PREDNISONE [Concomitant]
     Active Substance: PREDNISONE
  8. PANTOPRAZOLE SODIUM [Concomitant]
     Active Substance: PANTOPRAZOLE SODIUM
  9. LISINOPRIL [Concomitant]
     Active Substance: LISINOPRIL
  10. Vitamin D [Concomitant]
  11. B-complex [Concomitant]
  12. Oily Women^s Multi vitamin [Concomitant]

REACTIONS (8)
  - Compulsive shopping [None]
  - Weight increased [None]
  - Economic problem [None]
  - Job dissatisfaction [None]
  - Condition aggravated [None]
  - Gambling disorder [None]
  - Compulsions [None]
  - Abnormal behaviour [None]

NARRATIVE: CASE EVENT DATE: 20200601
